FAERS Safety Report 4589678-X (Version None)
Quarter: 2005Q1

REPORT INFORMATION
  Report Type: 
  Country: None (occurrence: None)
  Receive Date: 20050217
  Receipt Date: 20050208
  Transmission Date: 20050727
  Serious: Yes (Death, Hospitalization)
  Sender: FDA-Public Use
  Company Number: 2005-02-0353

PATIENT
  Age: 56 Year
  Sex: Male

DRUGS (1)
  1. INTRON A [Suspect]
     Indication: SUBACUTE SCLEROSING PANENCEPHALITIS
     Dates: start: 20040701, end: 20040101

REACTIONS (10)
  - COMA [None]
  - CSF BACTERIA IDENTIFIED [None]
  - INFECTION [None]
  - LOSS OF CONSCIOUSNESS [None]
  - PNEUMONIA [None]
  - PUPIL FIXED [None]
  - STATUS EPILEPTICUS [None]
  - STREPTOCOCCAL BACTERAEMIA [None]
  - STREPTOCOCCAL INFECTION [None]
  - THERAPY NON-RESPONDER [None]
